FAERS Safety Report 6163490-2 (Version None)
Quarter: 2009Q2

REPORT INFORMATION
  Report Type: 
  Country: None (occurrence: None)
  Receive Date: 20090420
  Receipt Date: 20080211
  Transmission Date: 20091009
  Serious: Yes (Other)
  Sender: FDA-Public Use
  Company Number: SPV1-2008-00087

PATIENT
  Age: 18 Year
  Sex: Female

DRUGS (1)
  1. LIALDA [Suspect]
     Indication: COLITIS ULCERATIVE
     Dosage: 2.4 G, 1X/DAY:QD, ORAL
     Route: 048
     Dates: start: 20080101, end: 20080101

REACTIONS (1)
  - PANCREATITIS [None]
